FAERS Safety Report 9912634 (Version 1)
Quarter: 2014Q1

REPORT INFORMATION
  Report Type: Spontaneous
  Country: US (occurrence: None)
  Receive Date: 20140218
  Receipt Date: 20140218
  Transmission Date: 20141002
  Serious: Yes (Other)
  Sender: FDA-Public Use
  Company Number: None

PATIENT
  Age: 31 None
  Sex: Female
  Weight: 60.9 kg

DRUGS (1)
  1. VIIBRYD [Suspect]
     Indication: ANXIETY DISORDER
     Dosage: 40 MG NIGHTLY PO WIT A MEAL
     Route: 048
     Dates: start: 20130822, end: 20140214

REACTIONS (2)
  - Hallucination [None]
  - Drug dose omission [None]
